FAERS Safety Report 5379050-7 (Version None)
Quarter: 2007Q3

REPORT INFORMATION
  Report Type: 
  Country: None (occurrence: None)
  Receive Date: 20070705
  Receipt Date: 20070702
  Transmission Date: 20080115
  Serious: Yes (Congenital Anomaly)
  Sender: FDA-Public Use
  Company Number: GB-ROCHE-488644

PATIENT
  Age: 31 Year
  Sex: Female
  Weight: 60.5 kg

DRUGS (7)
  1. FUZEON [Suspect]
     Route: 058
  2. COTRIM [Suspect]
     Route: 065
     Dates: start: 20040101
  3. VALGANCICLOVIR HCL [Suspect]
     Indication: CYTOMEGALOVIRUS INFECTION
     Route: 065
     Dates: start: 20040901
  4. DIDANOSINE [Suspect]
     Route: 048
     Dates: start: 20040901
  5. EPIVIR [Suspect]
     Route: 048
  6. REYATAZ [Suspect]
     Route: 048
  7. NORVIR [Suspect]
     Route: 048

REACTIONS (4)
  - ABORTION SPONTANEOUS [None]
  - INTRA-UTERINE DEATH [None]
  - PLACENTAL INFARCTION [None]
  - UMBILICAL CORD ABNORMALITY [None]
